FAERS Safety Report 4450917-7 (Version None)
Quarter: 2004Q3

REPORT INFORMATION
  Report Type: 
  Country: None (occurrence: None)
  Receive Date: 20040916
  Receipt Date: 20020418
  Transmission Date: 20050211
  Serious: Yes (Other)
  Sender: FDA-Public Use
  Company Number: US-BRISTOL-MYERS SQUIBB COMPANY-11842499

PATIENT
  Age: 18 Year
  Sex: Female

DRUGS (2)
  1. STADOL [Suspect]
     Indication: PAIN
     Dosage: 10-MAY-1992: 1 WEEK MAY, JUNE, JULY, AUG 1996: 3 WEEKS
     Route: 041
     Dates: start: 19920510, end: 19960501
  2. STADOL [Suspect]
     Indication: PAIN
     Route: 045
     Dates: start: 19960913

REACTIONS (3)
  - ASTHENIA [None]
  - DEPENDENCE [None]
  - SYNCOPE [None]
